FAERS Safety Report 15121343 (Version 2)
Quarter: 2018Q3

REPORT INFORMATION
  Report Type: Spontaneous
  Country: US (occurrence: US)
  Receive Date: 20180709
  Receipt Date: 20180713
  Transmission Date: 20181010
  Serious: Yes (Other)
  Sender: FDA-Public Use
  Company Number: US-PFIZER INC-2018270514

PATIENT
  Age: 36 Year
  Sex: Female
  Weight: 49.44 kg

DRUGS (1)
  1. ALPRAZOLAM. [Suspect]
     Active Substance: ALPRAZOLAM
     Indication: PANIC REACTION
     Dosage: 1 MG, 4X/DAY
     Route: 048
     Dates: start: 1999

REACTIONS (14)
  - Pain [Unknown]
  - Post-traumatic stress disorder [Unknown]
  - Product storage error [Unknown]
  - Product quality issue [Unknown]
  - Cerebral haemorrhage [Unknown]
  - Paranoia [Unknown]
  - Agoraphobia [Unknown]
  - Constipation [Unknown]
  - Anxiety [Not Recovered/Not Resolved]
  - Swelling [Unknown]
  - Gastrointestinal disorder [Unknown]
  - Cardiac disorder [Unknown]
  - Drug ineffective [Unknown]
  - Poor quality drug administered [Unknown]

NARRATIVE: CASE EVENT DATE: 1999
